FAERS Safety Report 6709958-9 (Version None)
Quarter: 2010Q2

REPORT INFORMATION
  Report Type: 
  Country: None (occurrence: None)
  Receive Date: 20100503
  Receipt Date: 20100503
  Transmission Date: 20101027
  Serious: Yes (Other)
  Sender: FDA-Public Use
  Company Number: None

PATIENT
  Age: 14 Month
  Sex: Female
  Weight: 10.8863 kg

DRUGS (1)
  1. TYLENOL (CAPLET) [Suspect]
     Indication: PYREXIA
     Dosage: .12 EVERY 4 HOURS PO
     Route: 048
     Dates: start: 20100428, end: 20100502

REACTIONS (1)
  - URTICARIA [None]
